FAERS Safety Report 6632523-9 (Version None)
Quarter: 2010Q1

REPORT INFORMATION
  Report Type: 
  Country: None (occurrence: None)
  Receive Date: 20100312
  Receipt Date: 20100223
  Transmission Date: 20100710
  Serious: No
  Sender: FDA-Public Use
  Company Number: US-BIOGENIDEC-2010BI006033

PATIENT
  Sex: Female

DRUGS (1)
  1. AVONEX [Suspect]
     Indication: MULTIPLE SCLEROSIS
     Route: 030
     Dates: start: 20061201, end: 20070301

REACTIONS (4)
  - BALANCE DISORDER [None]
  - DYSARTHRIA [None]
  - INJECTION SITE HAEMATOMA [None]
  - LIVER DISORDER [None]
